FAERS Safety Report 19239149 (Version 1)
Quarter: 2021Q2

REPORT INFORMATION
  Report Type: Spontaneous
  Country: CN (occurrence: CN)
  Receive Date: 20210510
  Receipt Date: 20210510
  Transmission Date: 20210717
  Serious: Yes (Hospitalization, Other)
  Sender: FDA-Public Use
  Company Number: CN-PFIZER INC-2021470869

PATIENT
  Age: 50 Year
  Sex: Female

DRUGS (1)
  1. PIPERACILLIN/TAZOBACTAM [Suspect]
     Active Substance: PIPERACILLIN SODIUM\TAZOBACTAM SODIUM
     Indication: PNEUMONIA
     Dosage: 4.5 G, 3X/DAY
     Route: 041
     Dates: start: 20210419, end: 20210422

REACTIONS (9)
  - Rash [Recovering/Resolving]
  - Systemic lupus erythematosus [Unknown]
  - Erythema [Recovering/Resolving]
  - Drug eruption [Recovering/Resolving]
  - Body temperature increased [Recovering/Resolving]
  - Dermatitis allergic [Unknown]
  - Connective tissue disorder [Unknown]
  - Pruritus [Recovering/Resolving]
  - Papule [Recovering/Resolving]

NARRATIVE: CASE EVENT DATE: 20210423
